FAERS Safety Report 5962377-5 (Version None)
Quarter: 2008Q4

REPORT INFORMATION
  Report Type: 
  Country: None (occurrence: None)
  Receive Date: 20081121
  Receipt Date: 20081113
  Transmission Date: 20090506
  Serious: Yes (Hospitalization)
  Sender: FDA-Public Use
  Company Number: NL-AMGEN-US319665

PATIENT
  Age: 12 Year
  Sex: Male

DRUGS (3)
  1. ENBREL [Suspect]
     Indication: JUVENILE ARTHRITIS
     Dosage: 25 MG EVERY
     Route: 058
     Dates: start: 20080709
  2. PREDNISONE TAB [Concomitant]
     Dosage: 5 MG: 2 TO 3 TIMES PER DAY
  3. NAPROXEN [Concomitant]

REACTIONS (1)
  - CROHN'S DISEASE [None]
